FAERS Safety Report 5401455-6 (Version None)
Quarter: 2007Q3

REPORT INFORMATION
  Report Type: 
  Country: None (occurrence: None)
  Receive Date: 20070726
  Receipt Date: 20070709
  Transmission Date: 20080115
  Serious: Yes (Other)
  Sender: FDA-Public Use
  Company Number: 2007EU001560

PATIENT
  Sex: Male

DRUGS (1)
  1. VESICARE [Suspect]
     Indication: INCONTINENCE
     Dosage: D

REACTIONS (1)
  - COGNITIVE DISORDER [None]
